FAERS Safety Report 10620431 (Version 1)
Quarter: 2014Q4

REPORT INFORMATION
  Report Type: Spontaneous
  Country: US (occurrence: US)
  Receive Date: 20141202
  Receipt Date: 20141202
  Transmission Date: 20150529
  Serious: No
  Sender: FDA-Public Use
  Company Number: US-009507513-1412USA001037

PATIENT
  Sex: Male

DRUGS (1)
  1. COPPERTONE SPECTRA 3 SPF-50 [Suspect]
     Active Substance: HOMOSALATE\OCTINOXATE\OCTISALATE\OCTOCRYLENE\ZINC OXIDE
     Indication: PRODUCT USED FOR UNKNOWN INDICATION
     Dosage: UNK, UNKNOWN
     Route: 061

REACTIONS (2)
  - Rash macular [Not Recovered/Not Resolved]
  - Drug ineffective [Unknown]
